FAERS Safety Report 6061198-5 (Version None)
Quarter: 2009Q1

REPORT INFORMATION
  Report Type: 
  Country: None (occurrence: None)
  Receive Date: 20090202
  Receipt Date: 20090122
  Transmission Date: 20090719
  Serious: Yes (Hospitalization, Other)
  Sender: FDA-Public Use
  Company Number: CA-JNJFOC-20090105812

PATIENT
  Sex: Female
  Weight: 57.15 kg

DRUGS (8)
  1. REMICADE [Suspect]
     Route: 042
  2. REMICADE [Suspect]
     Route: 042
  3. REMICADE [Suspect]
     Indication: CROHN'S DISEASE
     Route: 042
  4. METOPROLOL TARTRATE [Concomitant]
     Route: 048
  5. TOTAL PARENTAL NUTRITION [Concomitant]
     Route: 042
  6. CIPRO [Concomitant]
  7. THYROID PILL [Concomitant]
  8. CELEXA [Concomitant]

REACTIONS (2)
  - CALCIUM DEFICIENCY [None]
  - SPINAL FRACTURE [None]
